FAERS Safety Report 8078077-4 (Version None)
Quarter: 2012Q1

REPORT INFORMATION
  Report Type: 
  Country: None (occurrence: None)
  Receive Date: 20120127
  Receipt Date: 20110112
  Transmission Date: 20120608
  Serious: No
  Sender: FDA-Public Use
  Company Number: US-ABBOTT-10P-163-0683071-00

PATIENT
  Sex: Female
  Weight: 61.29 kg

DRUGS (5)
  1. DEPAKOTE [Concomitant]
     Indication: BIPOLAR DISORDER
     Dosage: 500 MG DAILY
  2. LEXAPRO [Concomitant]
     Indication: DEPRESSION
  3. HUMIRA [Suspect]
     Indication: PSORIASIS
     Dates: start: 20100901
  4. HUMIRA [Suspect]
     Indication: PSORIATIC ARTHROPATHY
  5. XANAX [Concomitant]
     Indication: PRODUCT USED FOR UNKNOWN INDICATION

REACTIONS (4)
  - PAIN [None]
  - DEVICE MALFUNCTION [None]
  - INJECTION SITE PAIN [None]
  - NEEDLE ISSUE [None]
